FAERS Safety Report 8373715-0 (Version None)
Quarter: 2012Q2

REPORT INFORMATION
  Report Type: 
  Country: None (occurrence: None)
  Receive Date: 20120521
  Receipt Date: 20120507
  Transmission Date: 20120825
  Serious: No
  Sender: FDA-Public Use
  Company Number: US-ASTRAZENECA-2012SE03295

PATIENT
  Age: 44 Year
  Sex: Female

DRUGS (3)
  1. LAXATIVE [Concomitant]
  2. SEROQUEL [Suspect]
     Route: 048
  3. SEROQUEL [Suspect]
     Route: 048

REACTIONS (10)
  - PRESYNCOPE [None]
  - CONSTIPATION [None]
  - DIZZINESS [None]
  - INFREQUENT BOWEL MOVEMENTS [None]
  - SOMNOLENCE [None]
  - INFLUENZA LIKE ILLNESS [None]
  - DRUG EFFECT INCREASED [None]
  - DRUG EFFECT DECREASED [None]
  - WEIGHT DECREASED [None]
  - WEIGHT INCREASED [None]
